FAERS Safety Report 22338551 (Version 1)
Quarter: 2023Q2

REPORT INFORMATION
  Report Type: Spontaneous
  Country: US (occurrence: None)
  Receive Date: 20230518
  Receipt Date: 20230518
  Transmission Date: 20230722
  Serious: No
  Sender: FDA-Public Use
  Company Number: US-ROCHE-3256818

PATIENT
  Age: 87 Year
  Sex: Female
  Weight: 63.56 kg

DRUGS (6)
  1. ACTEMRA [Suspect]
     Active Substance: TOCILIZUMAB
     Indication: Giant cell arteritis
     Dosage: INDICATION: GIANT RED CELL ARTHRITIS, POLY MULTIPLE ARTHRITIS
     Route: 058
     Dates: start: 20221013
  2. ACTEMRA [Suspect]
     Active Substance: TOCILIZUMAB
  3. ACTEMRA [Suspect]
     Active Substance: TOCILIZUMAB
     Indication: Polyarthritis
  4. ACTEMRA [Suspect]
     Active Substance: TOCILIZUMAB
  5. PREDNISONE [Concomitant]
     Active Substance: PREDNISONE
     Indication: Giant cell arteritis
     Dosage: GIANT CELL ARTHRITIS, POLY MULTIPLE ARITIS
  6. PREDNISONE [Concomitant]
     Active Substance: PREDNISONE
     Dosage: GIANT CELL ARTHRITIS, POLY MULTIPLE ARITIS

REACTIONS (4)
  - Wrong technique in product usage process [Unknown]
  - Product complaint [Unknown]
  - Device malfunction [Unknown]
  - No adverse event [Unknown]

NARRATIVE: CASE EVENT DATE: 20221220
